FAERS Safety Report 8312983-8 (Version None)
Quarter: 2012Q2

REPORT INFORMATION
  Report Type: 
  Country: None (occurrence: None)
  Receive Date: 20120424
  Receipt Date: 20120410
  Transmission Date: 20120825
  Serious: Yes (Hospitalization)
  Sender: FDA-Public Use
  Company Number: DSJ-2012-02760

PATIENT
  Age: 80 Year
  Sex: Female

DRUGS (9)
  1. ANTIBIOTIC MEDICINE(COMBINATIONS OF ANTIBACTERIALS) [Suspect]
     Indication: VERTEBROPLASTY
     Dosage: PER ORAL
     Route: 048
     Dates: start: 20110730, end: 20110731
  2. BENICAR [Suspect]
     Indication: HYPERTENSION
     Dosage: 20 MG (20 MG, 1 IN 1 D), PER ORAL, 40 MG (40 MG, 1 IN 1 D),PER ORAL
     Route: 048
     Dates: start: 20100101, end: 20110801
  3. BENICAR [Suspect]
     Indication: HYPERTENSION
     Dosage: 20 MG (20 MG, 1 IN 1 D), PER ORAL, 40 MG (40 MG, 1 IN 1 D),PER ORAL
     Route: 048
     Dates: start: 20110801, end: 20120101
  4. BENICAR [Suspect]
     Indication: HYPERTENSION
     Dosage: 20 MG (20 MG, 1 IN 1 D), PER ORAL, 40 MG (40 MG, 1 IN 1 D),PER ORAL
     Route: 048
     Dates: start: 20110801, end: 20110801
  5. SOTALOL (SOTALOL)(SOTALOL) [Concomitant]
  6. GLUCOSAMINE(GLUCOSAMINE)(GLUCOSAMINE) [Concomitant]
  7. ANTIINFLAMATORY MEDICINE (ANTIINFLAMMATORY AGENTS) [Suspect]
     Indication: VERTEBROPLASTY
     Dosage: PER ORAL
     Route: 048
     Dates: start: 20110730, end: 20110731
  8. ACETYLSALICYLIC ACID/ALUMINUM GLYCINATE/MAGNESIUM CARBONATE [Concomitant]
  9. RISEDRONATE (RISEDRONATE SODIUM)(RISEDRONATE SODIUM) [Concomitant]

REACTIONS (5)
  - BLOOD PRESSURE SYSTOLIC INCREASED [None]
  - OEDEMA PERIPHERAL [None]
  - DRUG INEFFECTIVE [None]
  - SPINAL FRACTURE [None]
  - VERTEBROPLASTY [None]
